FAERS Safety Report 7023909-1 (Version None)
Quarter: 2010Q3

REPORT INFORMATION
  Report Type: 
  Country: None (occurrence: None)
  Receive Date: 20100916
  Receipt Date: 20090929
  Transmission Date: 20110219
  Serious: Yes (Hospitalization, Other)
  Sender: FDA-Public Use
  Company Number: 163-20484-09100465 (0)

PATIENT
  Age: 46 Year
  Sex: Male
  Weight: 56.3 kg

DRUGS (5)
  1. INNOHEP [Suspect]
     Indication: PULMONARY EMBOLISM
     Dosage: 175 UNITS/KG (DAILY),INJECTION; 175 UNITS/KG (DAILY),INJECTION
     Dates: start: 20090616, end: 20090901
  2. INNOHEP [Suspect]
     Indication: THROMBOSIS PROPHYLAXIS
     Dosage: 175 UNITS/KG (DAILY),INJECTION; 175 UNITS/KG (DAILY),INJECTION
     Dates: start: 20090616, end: 20090901
  3. INNOHEP [Suspect]
     Indication: PULMONARY EMBOLISM
     Dosage: 175 UNITS/KG (DAILY),INJECTION; 175 UNITS/KG (DAILY),INJECTION
     Dates: start: 20090929
  4. INNOHEP [Suspect]
     Indication: THROMBOSIS PROPHYLAXIS
     Dosage: 175 UNITS/KG (DAILY),INJECTION; 175 UNITS/KG (DAILY),INJECTION
     Dates: start: 20090929
  5. CHEMOTHERAPY (CHEMOTHERAPEUTICS) [Concomitant]

REACTIONS (2)
  - HAEMOGLOBIN DECREASED [None]
  - URINARY BLADDER HAEMORRHAGE [None]
